FAERS Safety Report 16591329 (Version 3)
Quarter: 2019Q4

REPORT INFORMATION
  Report Type: Spontaneous
  Country: US (occurrence: US)
  Receive Date: 20190718
  Receipt Date: 20191002
  Transmission Date: 20200122
  Serious: Yes (Other)
  Sender: FDA-Public Use
  Company Number: US-PFIZER INC-2019303091

PATIENT
  Age: 56 Year
  Sex: Male
  Weight: 68.27 kg

DRUGS (1)
  1. VIAGRA [Suspect]
     Active Substance: SILDENAFIL CITRATE
     Dosage: 10 MG, 2X/DAY
     Dates: start: 2010

REACTIONS (3)
  - Off label use [Unknown]
  - Paralysis [Recovered/Resolved]
  - Product use issue [Unknown]
